FAERS Safety Report 8521139-5 (Version None)
Quarter: 2012Q3

REPORT INFORMATION
  Report Type: 
  Country: None (occurrence: None)
  Receive Date: 20120719
  Receipt Date: 20120709
  Transmission Date: 20120928
  Serious: Yes (Other)
  Sender: FDA-Public Use
  Company Number: JP-ELI_LILLY_AND_COMPANY-JP201207002075

PATIENT
  Age: 59 Year
  Sex: Female

DRUGS (3)
  1. FORTEO [Suspect]
     Indication: OSTEOPOROSIS
     Dosage: UNK, QD
     Route: 058
     Dates: start: 20120703
  2. EVISTA [Suspect]
     Dosage: UNK
     Dates: start: 20110601, end: 20120701
  3. EVISTA [Suspect]
     Indication: OSTEOPOROSIS
     Dosage: UNK
     Route: 048
     Dates: start: 20090101

REACTIONS (7)
  - BONE PAIN [None]
  - NAUSEA [None]
  - INJECTION SITE ERYTHEMA [None]
  - SPINAL COMPRESSION FRACTURE [None]
  - DERMATITIS CONTACT [None]
  - HYPONATRAEMIA [None]
  - ECZEMA [None]
